FAERS Safety Report 5383330-9 (Version None)
Quarter: 2007Q3

REPORT INFORMATION
  Report Type: 
  Country: None (occurrence: None)
  Receive Date: 20070710
  Receipt Date: 20070628
  Transmission Date: 20080115
  Serious: Yes (Hospitalization)
  Sender: FDA-Public Use
  Company Number: FR-PFIZER INC-2007054174

PATIENT
  Age: 61 Year
  Sex: Female

DRUGS (4)
  1. ATORVASTATIN CALCIUM [Suspect]
     Route: 048
     Dates: start: 20070129, end: 20070312
  2. CRESTOR [Suspect]
     Route: 048
     Dates: start: 20070312, end: 20070313
  3. LASIX [Concomitant]
     Route: 048
     Dates: start: 20070313, end: 20070315
  4. NEORAL [Concomitant]
     Route: 048

REACTIONS (7)
  - ANURIA [None]
  - ASTHENIA [None]
  - DEHYDRATION [None]
  - DRUG INTERACTION [None]
  - RENAL FAILURE ACUTE [None]
  - RENAL TUBULAR NECROSIS [None]
  - RHABDOMYOLYSIS [None]
